FAERS Safety Report 25525958 (Version 1)
Quarter: 2025Q3

REPORT INFORMATION
  Report Type: Spontaneous
  Country: US (occurrence: US)
  Receive Date: 20250707
  Receipt Date: 20250707
  Transmission Date: 20251021
  Serious: Yes (Death, Other)
  Sender: AMGEN
  Company Number: US-AMGEN-USASP2025131186

PATIENT

DRUGS (4)
  1. RITUXIMAB [Suspect]
     Active Substance: RITUXIMAB
     Indication: Product used for unknown indication
     Route: 065
  2. INFLIXIMAB [Suspect]
     Active Substance: INFLIXIMAB
     Indication: Product used for unknown indication
     Route: 065
  3. ADALIMUMAB [Suspect]
     Active Substance: ADALIMUMAB
     Indication: Product used for unknown indication
     Route: 065
  4. ETANERCEPT [Suspect]
     Active Substance: ETANERCEPT
     Indication: Product used for unknown indication
     Route: 065

REACTIONS (11)
  - Death [Fatal]
  - Sudden cardiac death [Fatal]
  - Cerebrovascular accident [Unknown]
  - Cardiac failure [Unknown]
  - Diabetes mellitus [Unknown]
  - Chronic kidney disease [Unknown]
  - Cardiac pacemaker insertion [Unknown]
  - Atrioventricular block [Unknown]
  - Cardiovascular disorder [Unknown]
  - Off label use [Unknown]
  - Obesity [Unknown]
